FAERS Safety Report 12099856 (Version 1)
Quarter: 2016Q1

REPORT INFORMATION
  Report Type: Spontaneous
  Country: US (occurrence: None)
  Receive Date: 20160219
  Receipt Date: 20160219
  Transmission Date: 20160526
  Serious: Yes (Disabling)
  Sender: FDA-Public Use
  Company Number: None

PATIENT
  Age: 67 Year
  Sex: Female
  Weight: 79.83 kg

DRUGS (23)
  1. FLURBIPROFEN. [Concomitant]
     Active Substance: FLURBIPROFEN
  2. TRAZODONE [Concomitant]
     Active Substance: TRAZODONE HYDROCHLORIDE
  3. PAROXETINE [Concomitant]
     Active Substance: PAROXETINE\PAROXETINE HYDROCHLORIDE
  4. CULTURELLE [Concomitant]
     Active Substance: LACTOBACILLUS RHAMNOSUS
  5. MYRBETRIQ [Suspect]
     Active Substance: MIRABEGRON
     Indication: HYPERTONIC BLADDER
     Route: 048
     Dates: start: 20150421, end: 20160218
  6. CPAP [Concomitant]
     Active Substance: DEVICE
  7. GABAPENTIN. [Concomitant]
     Active Substance: GABAPENTIN
  8. PREMARIN CREAM [Concomitant]
  9. A + D OINTMENT [Concomitant]
  10. CELLULOSE GUM EYE DROPS [Concomitant]
  11. MIRALAX [Concomitant]
     Active Substance: POLYETHYLENE GLYCOL 3350
  12. FLUTICASONE NASAL SPRAY [Concomitant]
     Active Substance: FLUTICASONE\FLUTICASONE PROPIONATE
  13. PILOCARPINE. [Concomitant]
     Active Substance: PILOCARPINE
  14. PRAMIPEXOLE. [Concomitant]
     Active Substance: PRAMIPEXOLE
  15. VOLTAREN [Concomitant]
     Active Substance: DICLOFENAC SODIUM
  16. METAMUCIL [Concomitant]
     Active Substance: PLANTAGO SEED
  17. MULTIVITAMIN [Concomitant]
     Active Substance: VITAMINS
  18. CLONAZEPAM. [Concomitant]
     Active Substance: CLONAZEPAM
  19. CALCIUM + D [Concomitant]
     Active Substance: CALCIUM\VITAMIN D
  20. CURCUMIN [Concomitant]
     Active Substance: CURCUMIN
  21. FISH OIL [Concomitant]
     Active Substance: FISH OIL
  22. OCUVITE [Concomitant]
     Active Substance: VITAMINS
  23. VITAMIN D [Concomitant]
     Active Substance: CHOLECALCIFEROL

REACTIONS (2)
  - Restless legs syndrome [None]
  - Periodic limb movement disorder [None]

NARRATIVE: CASE EVENT DATE: 20150421
